FAERS Safety Report 5675988-1 (Version None)
Quarter: 2008Q1

REPORT INFORMATION
  Report Type: 
  Country: None (occurrence: None)
  Receive Date: 20080318
  Receipt Date: 20070103
  Transmission Date: 20080703
  Serious: No
  Sender: FDA-Public Use
  Company Number: US022903

PATIENT
  Sex: Male

DRUGS (2)
  1. FENTORA [Suspect]
     Indication: PAIN
     Dosage: 400 UG BUCCAL
     Route: 002
  2. FENTANYL [Concomitant]

REACTIONS (2)
  - DRUG PRESCRIBING ERROR [None]
  - MEDICATION ERROR [None]
